FAERS Safety Report 21931682 (Version 1)
Quarter: 2023Q1

REPORT INFORMATION
  Report Type: Spontaneous
  Country: US (occurrence: None)
  Receive Date: 20230130
  Receipt Date: 20230130
  Transmission Date: 20230418
  Serious: Yes (Hospitalization)
  Sender: FDA-Public Use
  Company Number: None

PATIENT
  Age: 60 Year
  Sex: Female
  Weight: 94.5 kg

DRUGS (1)
  1. COSENTYX [Suspect]
     Active Substance: SECUKINUMAB
     Indication: Psoriasis
     Dosage: OTHER QUANTITY : 2 INJECTION(S);?OTHER FREQUENCY : 2 INJECTIONS ONCE;?
     Route: 030

REACTIONS (2)
  - Upper respiratory tract infection [None]
  - Immune-mediated neuropathy [None]

NARRATIVE: CASE EVENT DATE: 20230103
